FAERS Safety Report 25596558 (Version 1)
Quarter: 2025Q3

REPORT INFORMATION
  Report Type: Spontaneous
  Country: HK (occurrence: HK)
  Receive Date: 20250723
  Receipt Date: 20250723
  Transmission Date: 20251020
  Serious: Yes (Hospitalization, Other)
  Sender: PFIZER
  Company Number: HK-PFIZER INC-PV202500087187

PATIENT
  Age: 7 Decade
  Sex: Female

DRUGS (1)
  1. LORLATINIB [Suspect]
     Active Substance: LORLATINIB

REACTIONS (5)
  - Hallucination, auditory [Unknown]
  - Persecutory delusion [Unknown]
  - Confusional state [Unknown]
  - Illusion [Unknown]
  - Product administration error [Unknown]
